FAERS Safety Report 11753113 (Version 1)
Quarter: 2015Q4

REPORT INFORMATION
  Report Type: Spontaneous
  Country: US (occurrence: None)
  Receive Date: 20151118
  Receipt Date: 20151118
  Transmission Date: 20160304
  Serious: Yes (Death)
  Sender: FDA-Public Use
  Company Number: None

PATIENT
  Age: 74 Year
  Sex: Female
  Weight: 93 kg

DRUGS (22)
  1. ACETAMINOPHEN. [Concomitant]
     Active Substance: ACETAMINOPHEN
  2. CHOLECALCIFEROL [Concomitant]
     Active Substance: CHOLECALCIFEROL
  3. LANTUS [Concomitant]
     Active Substance: INSULIN GLARGINE
  4. ASPIRIN. [Concomitant]
     Active Substance: ASPIRIN
  5. ESCITALOPRAM [Concomitant]
     Active Substance: ESCITALOPRAM OXALATE
  6. LISPRO [Concomitant]
     Active Substance: INSULIN LISPRO
  7. FERROUS SULFATE [Concomitant]
     Active Substance: FERROUS SULFATE\FERROUS SULFATE, DRIED
  8. LEVOTHYROXINE. [Concomitant]
     Active Substance: LEVOTHYROXINE
  9. OMEPRAZOLE. [Concomitant]
     Active Substance: OMEPRAZOLE
  10. METOPROLOL [Concomitant]
     Active Substance: METOPROLOL
  11. LISINOPRIL. [Concomitant]
     Active Substance: LISINOPRIL
  12. SENNA [Concomitant]
     Active Substance: SENNA LEAF\SENNOSIDES\SENNOSIDES A AND B
  13. VANCOMYCIN [Concomitant]
     Active Substance: VANCOMYCIN
  14. ATORVASTATIN [Concomitant]
     Active Substance: ATORVASTATIN
  15. DILTIAZEM [Concomitant]
     Active Substance: DILTIAZEM
  16. FLUTICASONE NASAL SPRAY [Concomitant]
     Active Substance: FLUTICASONE\FLUTICASONE PROPIONATE
  17. FUROSEMIDE. [Concomitant]
     Active Substance: FUROSEMIDE
  18. HYDROCORTISONE. [Concomitant]
     Active Substance: HYDROCORTISONE
  19. NITROGLYCERIN. [Concomitant]
     Active Substance: NITROGLYCERIN
  20. WARFARIN 5 MG [Suspect]
     Active Substance: WARFARIN
     Indication: ATRIAL FIBRILLATION
     Dosage: 0.5 - 1 TABLET QD ORAL
     Route: 048
  21. ALBUTEROL INHALER [Concomitant]
     Active Substance: ALBUTEROL
  22. PROCHLORPERAZINE. [Concomitant]
     Active Substance: PROCHLORPERAZINE

REACTIONS (12)
  - Dizziness [None]
  - Blood urine present [None]
  - Gastrointestinal haemorrhage [None]
  - Atrial fibrillation [None]
  - Somnolence [None]
  - Haemoglobin decreased [None]
  - International normalised ratio increased [None]
  - Nausea [None]
  - Rectal haemorrhage [None]
  - Vomiting [None]
  - Blood creatinine increased [None]
  - Cholecystitis [None]

NARRATIVE: CASE EVENT DATE: 20151101
